FAERS Safety Report 4423597-4 (Version None)
Quarter: 2004Q3

REPORT INFORMATION
  Report Type: 
  Country: None (occurrence: None)
  Receive Date: 20040805
  Receipt Date: 20040726
  Transmission Date: 20050211
  Serious: Yes (Death, Hospitalization)
  Sender: FDA-Public Use
  Company Number: 04P-167-0266013-00

PATIENT
  Age: 68 Year
  Sex: Female
  Weight: 80 kg

DRUGS (6)
  1. BIAXIN [Suspect]
     Indication: LOWER RESPIRATORY TRACT INFECTION
     Dosage: PER ORAL
     Route: 048
     Dates: start: 20031101, end: 20031101
  2. PAROXETINE HCL [Suspect]
     Indication: DEPRESSION
     Dosage: PER ORAL
     Route: 048
     Dates: start: 20031001, end: 20031101
  3. THEOPHYLLINE [Suspect]
     Dates: end: 20031113
  4. HORMONE REPLACEMENT [Concomitant]
  5. ANTACID TAB [Concomitant]
  6. METERED DOSE NEBULIZER [Concomitant]

REACTIONS (19)
  - AORTIC STENOSIS [None]
  - CARDIAC FAILURE [None]
  - CARDIOMEGALY [None]
  - CARDIOMYOPATHY [None]
  - CARDIOTOXICITY [None]
  - CHRONIC OBSTRUCTIVE AIRWAYS DISEASE [None]
  - CORONARY ARTERY ATHEROSCLEROSIS [None]
  - CORONARY ARTERY OCCLUSION [None]
  - CORONARY ARTERY THROMBOSIS [None]
  - DRUG INTERACTION [None]
  - DRUG TOXICITY [None]
  - DYSPNOEA [None]
  - ELECTROCARDIOGRAM ABNORMAL [None]
  - HEART RATE INCREASED [None]
  - MALAISE [None]
  - MYOCARDIAL INFARCTION [None]
  - MYOCARDIAL ISCHAEMIA [None]
  - NAUSEA [None]
  - VOMITING [None]
